FAERS Safety Report 8193550-6 (Version None)
Quarter: 2012Q1

REPORT INFORMATION
  Report Type: 
  Country: None (occurrence: None)
  Receive Date: 20120308
  Receipt Date: 20120229
  Transmission Date: 20120608
  Serious: Yes (Other)
  Sender: FDA-Public Use
  Company Number: US-ROCHE-783800

PATIENT
  Sex: Female
  Weight: 58.566 kg

DRUGS (5)
  1. ACCUTANE [Suspect]
     Indication: PRODUCT USED FOR UNKNOWN INDICATION
     Route: 065
     Dates: start: 19940423, end: 19950130
  2. ACCUTANE [Suspect]
     Route: 065
     Dates: start: 19960328, end: 19960711
  3. ACCUTANE [Suspect]
     Route: 065
     Dates: start: 20000609, end: 20001007
  4. ORTHO TRI-CYCLEN [Concomitant]
  5. ACCUTANE [Suspect]
     Route: 065
     Dates: start: 19980804, end: 19981227

REACTIONS (6)
  - EMOTIONAL DISTRESS [None]
  - DEPRESSION [None]
  - DRY SKIN [None]
  - COLITIS ULCERATIVE [None]
  - SUICIDAL IDEATION [None]
  - INFLAMMATORY BOWEL DISEASE [None]
